FAERS Safety Report 11390495 (Version 1)
Quarter: 2015Q3

REPORT INFORMATION
  Report Type: Spontaneous
  Country: US (occurrence: US)
  Receive Date: 20150818
  Receipt Date: 20150818
  Transmission Date: 20151125
  Serious: No
  Sender: FDA-Public Use
  Company Number: US-ROCHE-546988

PATIENT
  Age: 20 Year
  Sex: Female

DRUGS (2)
  1. PEGASYS [Suspect]
     Active Substance: PEGINTERFERON ALFA-2A
     Indication: PRODUCT USED FOR UNKNOWN INDICATION
     Dosage: TAKEN FOR 17.3 WEEKS AFTER GESTATION
     Route: 065
     Dates: start: 20071012, end: 20080212
  2. COPEGUS [Suspect]
     Active Substance: RIBAVIRIN
     Indication: PRODUCT USED FOR UNKNOWN INDICATION
     Dosage: TAKEN FOR 17.3 WEEKS AFTER GESTATION.
     Route: 065
     Dates: start: 20071012, end: 20080212

REACTIONS (2)
  - Pregnancy [Unknown]
  - No adverse event [Unknown]
